FAERS Safety Report 8956705 (Version 1)
Quarter: 2012Q4

REPORT INFORMATION
  Report Type: Spontaneous
  Country: QA (occurrence: None)
  Receive Date: 20121128
  Receipt Date: 20121128
  Transmission Date: 20130627
  Serious: Yes (Death, Hospitalization)
  Sender: FDA-Public Use
  Company Number: 2012ST000136

PATIENT
  Age: 60 Year
  Sex: Female

DRUGS (8)
  1. OMEPRAZOLE (OMEPRAZOLE) [Suspect]
     Indication: GASTRIC ULCER PROPHYLAXIS
  2. ATORVASTATIN [Suspect]
     Indication: HYPERLIPIDEMIA
  3. DEXAMETHASONE [Suspect]
     Indication: SPINAL CORD COMPRESSION
  4. CALCIUM CARBONATE [Concomitant]
  5. TRAMADOL [Concomitant]
  6. CELECOXIB [Concomitant]
  7. GABAPENTIN [Concomitant]
  8. BISACODYL [Concomitant]

REACTIONS (7)
  - Rhabdomyolysis [None]
  - Drug interaction [None]
  - Dyspnoea [None]
  - Lethargy [None]
  - Blood urea increased [None]
  - Muscular weakness [None]
  - Escherichia test positive [None]
